FAERS Safety Report 17147360 (Version 4)
Quarter: 2020Q1

REPORT INFORMATION
  Report Type: Spontaneous
  Country: US (occurrence: US)
  Receive Date: 20191212
  Receipt Date: 20200220
  Transmission Date: 20200409
  Serious: Yes (Hospitalization, Other)
  Sender: FDA-Public Use
  Company Number: US-SHIRE-US201942131

PATIENT
  Age: 73 Year
  Sex: Female

DRUGS (1)
  1. GATTEX [Suspect]
     Active Substance: TEDUGLUTIDE\WATER
     Indication: FISTULA
     Dosage: 0.40 UNIT UNK, 1X/DAY:QD
     Route: 058
     Dates: start: 20191204

REACTIONS (3)
  - Gastrointestinal stoma complication [Unknown]
  - Fistula discharge [Not Recovered/Not Resolved]
  - Intentional product use issue [Unknown]

NARRATIVE: CASE EVENT DATE: 20200213
